FAERS Safety Report 22366623 (Version 2)
Quarter: 2023Q2

REPORT INFORMATION
  Report Type: Spontaneous
  Country: US (occurrence: US)
  Receive Date: 20230525
  Receipt Date: 20230601
  Transmission Date: 20230722
  Serious: Yes (Life-Threatening, Other)
  Sender: FDA-Public Use
  Company Number: US-PFIZER INC-PV202300089896

PATIENT
  Age: 18 Year
  Sex: Female
  Weight: 40 kg

DRUGS (10)
  1. CEFTAZIDIME [Suspect]
     Active Substance: CEFTAZIDIME
     Indication: Bacteraemia
     Dosage: 2 G
  2. CEFTAZIDIME [Suspect]
     Active Substance: CEFTAZIDIME
     Dosage: 9 G/D HIGH DOSE OR EXTENDED INFUSION
  3. CEFTAZIDIME [Suspect]
     Active Substance: CEFTAZIDIME
     Dosage: 19.2 G/D HIGH DOSE OR EXTENDED INFUSION
  4. ETOPOSIDE [Concomitant]
     Active Substance: ETOPOSIDE
     Indication: T-cell lymphoma
     Dosage: UNK
  5. PREDNISONE [Concomitant]
     Active Substance: PREDNISONE
     Indication: T-cell lymphoma
     Dosage: UNK
  6. VINCRISTINE [Concomitant]
     Active Substance: VINCRISTINE
     Indication: T-cell lymphoma
     Dosage: UNK
  7. CYCLOPHOSPHAMIDE [Concomitant]
     Active Substance: CYCLOPHOSPHAMIDE
     Indication: T-cell lymphoma
     Dosage: UNK
  8. DOXORUBICIN [Concomitant]
     Active Substance: DOXORUBICIN
     Indication: T-cell lymphoma
     Dosage: UNK
  9. VANCOMYCIN [Concomitant]
     Active Substance: VANCOMYCIN
     Indication: Pseudomonas infection
     Dosage: UNK
  10. TOBRAMYCIN [Concomitant]
     Active Substance: TOBRAMYCIN
     Indication: Pseudomonas infection
     Dosage: UNK

REACTIONS (2)
  - Neurotoxicity [Unknown]
  - Neutropenia [Recovered/Resolved]
